FAERS Safety Report 11334463 (Version 2)
Quarter: 2015Q3

REPORT INFORMATION
  Report Type: Spontaneous
  Country: IT (occurrence: IT)
  Receive Date: 20150804
  Receipt Date: 20150806
  Transmission Date: 20151125
  Serious: Yes (Other)
  Sender: FDA-Public Use
  Company Number: IT-ROCHE-1614634

PATIENT
  Age: 53 Year
  Sex: Male
  Weight: 52 kg

DRUGS (4)
  1. TRUVADA [Concomitant]
     Active Substance: EMTRICITABINE\TENOFOVIR DISOPROXIL FUMARATE
     Indication: HIV INFECTION
     Dosage: 30 X 200 MG/245 MG-IN HDPE BOTTLE
     Route: 048
     Dates: start: 20150618, end: 20150701
  2. REYATAZ [Interacting]
     Active Substance: ATAZANAVIR SULFATE
     Indication: HIV INFECTION
     Dosage: 300 MG - ORAL USE BOTTLE- 30 CAPSULES
     Route: 048
     Dates: start: 20080618, end: 20150420
  3. SOVALDI [Interacting]
     Active Substance: SOFOSBUVIR
     Indication: CHRONIC HEPATITIS C
     Dosage: 400 MG -BOTTLE (HDPE) - 28 TABLETS
     Route: 048
     Dates: start: 20150401, end: 20150624
  4. COPEGUS [Suspect]
     Active Substance: RIBAVIRIN
     Indication: CHRONIC HEPATITIS C
     Dosage: 400 MG -56 TABLETS IN HDPE BOTTLE
     Route: 048
     Dates: start: 20150401, end: 20150624

REACTIONS (2)
  - Drug interaction [Unknown]
  - Hyperbilirubinaemia [Recovered/Resolved]

NARRATIVE: CASE EVENT DATE: 20150408
